FAERS Safety Report 6213484-3 (Version None)
Quarter: 2009Q2

REPORT INFORMATION
  Report Type: 
  Country: None (occurrence: None)
  Receive Date: 20090601
  Receipt Date: 20090501
  Transmission Date: 20091009
  Serious: Yes (Hospitalization, Disabling)
  Sender: FDA-Public Use
  Company Number: 108532

PATIENT
  Age: 2 Month
  Sex: Female

DRUGS (13)
  1. DAIVONEX (CALCIPOTRIOL) [Suspect]
     Indication: DERMATITIS ATOPIC
     Dosage: TOPICAL
     Route: 061
     Dates: start: 20090302, end: 20090308
  2. DAIVONEX (CALCIPOTRIOL) [Suspect]
     Indication: PITYRIASIS RUBRA PILARIS
     Dosage: TOPICAL
     Route: 061
     Dates: start: 20090302, end: 20090308
  3. OXAROL (MAXACALCITOL) [Suspect]
     Indication: DERMATITIS ATOPIC
     Dosage: 2 IN 1 D TOPICAL
     Route: 061
     Dates: start: 20090215, end: 20090301
  4. OXAROL (MAXACALCITOL) [Suspect]
     Indication: PITYRIASIS RUBRA PILARIS
     Dosage: 2 IN 1 D TOPICAL
     Route: 061
     Dates: start: 20090215, end: 20090301
  5. OXAROL (MAXACALCITOL) [Suspect]
     Indication: DERMATITIS ATOPIC
     Dosage: 2 IN 1 D TOPICAL
     Route: 061
     Dates: start: 20090309, end: 20090311
  6. OXAROL (MAXACALCITOL) [Suspect]
     Indication: PITYRIASIS RUBRA PILARIS
     Dosage: 2 IN 1 D TOPICAL
     Route: 061
     Dates: start: 20090309, end: 20090311
  7. VOALLA (DEXAMETHASONE VLAERATE) [Concomitant]
  8. ALMETA (ALCLOMETASONE DIPROPIONATE) [Concomitant]
  9. LOCOID (HYDROCORISONE BUTYRATE) [Concomitant]
  10. ANTERATE (BETAMETHASONE BUTYRATE PROPIONATE) [Concomitant]
  11. ZADITEN (KETOFIEN FUMARATE) [Concomitant]
  12. AMPICILLIN [Concomitant]
  13. CLAFORAN (CEFTOTAXIME SODIUM) [Concomitant]

REACTIONS (7)
  - CONDITION AGGRAVATED [None]
  - HYPERCALCAEMIA [None]
  - HYPERVITAMINOSIS [None]
  - OFF LABEL USE [None]
  - PITYRIASIS RUBRA PILARIS [None]
  - ULTRASOUND KIDNEY ABNORMAL [None]
  - URINARY TRACT INFECTION [None]
